FAERS Safety Report 24951837 (Version 1)
Quarter: 2025Q1

REPORT INFORMATION
  Report Type: Spontaneous
  Country: FR (occurrence: FR)
  Receive Date: 20250210
  Receipt Date: 20250210
  Transmission Date: 20250409
  Serious: Yes (Death, Other)
  Sender: TEVA
  Company Number: FR-TEVA-VS-3295537

PATIENT
  Age: 62 Year
  Sex: Male

DRUGS (3)
  1. ANASTROZOLE [Suspect]
     Active Substance: ANASTROZOLE
     Indication: Breast cancer male
     Route: 065
     Dates: start: 2010, end: 2016
  2. CAPECITABINE [Suspect]
     Active Substance: CAPECITABINE
     Indication: Breast cancer male
     Dosage: DOSE DECREASED FOR THE FOLLOWING 20 COURSES
     Route: 065
  3. CAPECITABINE [Suspect]
     Active Substance: CAPECITABINE
     Indication: Breast cancer male
     Route: 065
     Dates: start: 2020

REACTIONS (3)
  - Drug ineffective [Fatal]
  - Palmar-plantar erythrodysaesthesia syndrome [Unknown]
  - Anaemia [Not Recovered/Not Resolved]
